FAERS Safety Report 10051686 (Version 2)
Quarter: 2014Q2

REPORT INFORMATION
  Report Type: Spontaneous
  Country: US (occurrence: US)
  Receive Date: 20140401
  Receipt Date: 20140401
  Transmission Date: 20141212
  Serious: No
  Sender: FDA-Public Use
  Company Number: US-ASTRAZENECA-2011SE68060

PATIENT
  Age: 68 Year
  Sex: Female
  Weight: 89.8 kg

DRUGS (7)
  1. NEXIUM [Suspect]
     Indication: GASTROOESOPHAGEAL REFLUX DISEASE
     Route: 048
     Dates: start: 2008, end: 2012
  2. NEXIUM [Suspect]
     Indication: GASTROOESOPHAGEAL REFLUX DISEASE
     Route: 048
     Dates: start: 2012, end: 20131009
  3. METOPROLOL [Suspect]
     Indication: BLOOD PRESSURE
     Route: 048
     Dates: start: 2000
  4. ALUMINIUM HYDROXIDE AND MAGNESIUM [Concomitant]
     Indication: GASTROOESOPHAGEAL REFLUX DISEASE
     Dosage: 1-4 TABLETS AS REQUIRED
     Route: 048
     Dates: start: 20131009
  5. DIOVAN/HCTZ [Concomitant]
     Indication: BLOOD PRESSURE
     Route: 048
     Dates: start: 2000
  6. HYDROCODONE/ACETAMINOPHEN [Concomitant]
     Indication: PAIN
     Dosage: 5/500 MG, AS REQUIRED
     Route: 048
     Dates: start: 2009
  7. CAPZASIN HP ARTHRITIS PAIN RELIEF [Concomitant]
     Indication: PAIN
     Route: 061
     Dates: start: 2007

REACTIONS (12)
  - Pain [Unknown]
  - Hyperchlorhydria [Unknown]
  - Fatigue [Unknown]
  - Dyspepsia [Unknown]
  - Oesophageal pain [Unknown]
  - Stress [Unknown]
  - Weight decreased [Unknown]
  - Emotional distress [Unknown]
  - Off label use [Unknown]
  - Drug dose omission [Unknown]
  - Intentional product misuse [Unknown]
  - Intentional product misuse [Not Recovered/Not Resolved]
